FAERS Safety Report 8574578-0 (Version None)
Quarter: 2012Q3

REPORT INFORMATION
  Report Type: 
  Country: None (occurrence: None)
  Receive Date: 20120806
  Receipt Date: 20120724
  Transmission Date: 20120928
  Serious: Yes (Hospitalization)
  Sender: FDA-Public Use
  Company Number: US-MYLANLABS-2012S1015247

PATIENT
  Age: 79 Year
  Sex: Female

DRUGS (3)
  1. CLONIDINE [Suspect]
     Route: 048
  2. DIGOXIN [Suspect]
     Dosage: 0.125MG DAILY
     Route: 048
  3. DILTIAZEM [Suspect]
     Dosage: 360MG DAILY; EXTENDED RELEASE
     Route: 048

REACTIONS (8)
  - LEFT ATRIAL DILATATION [None]
  - PRESYNCOPE [None]
  - ASTHENIA [None]
  - INCORRECT DRUG ADMINISTRATION DURATION [None]
  - SINUS BRADYCARDIA [None]
  - INCORRECT DOSE ADMINISTERED [None]
  - ATRIOVENTRICULAR BLOCK SECOND DEGREE [None]
  - MALAISE [None]
